FAERS Safety Report 11834048 (Version 1)
Quarter: 2015Q4

REPORT INFORMATION
  Report Type: Report from Study
  Country: GB (occurrence: GB)
  Receive Date: 20151214
  Receipt Date: 20151214
  Transmission Date: 20160305
  Serious: Yes (Death)
  Sender: FDA-Public Use
  Company Number: GB-MUNDIPHARMA DS AND PHARMACOVIGILANCE-GBR-2015-0032604

PATIENT
  Age: 75 Year
  Sex: Male

DRUGS (1)
  1. BLINDED THEOPHYLLINE CR TABLET 200 MG [Suspect]
     Active Substance: THEOPHYLLINE ANHYDROUS
     Indication: CHRONIC OBSTRUCTIVE PULMONARY DISEASE
     Dosage: 200 MG, BID
     Route: 048
     Dates: start: 20151020, end: 20151130

REACTIONS (1)
  - Death [Fatal]

NARRATIVE: CASE EVENT DATE: 20151130
